FAERS Safety Report 4265868-0 (Version None)
Quarter: 2004Q1

REPORT INFORMATION
  Report Type: 
  Country: None (occurrence: None)
  Receive Date: 20040107
  Receipt Date: 20031203
  Transmission Date: 20041129
  Serious: Yes (Hospitalization, Other)
  Sender: FDA-Public Use
  Company Number: PHEH2003US11108

PATIENT
  Age: 62 Year
  Sex: Female
  Weight: 73 kg

DRUGS (14)
  1. ZOMETA [Suspect]
     Indication: METASTASES TO BONE
     Dosage: 4 MG, ONCE/SINGLE
     Route: 042
     Dates: start: 20031107
  2. PROPRANOLOL HYDROCHLORIDE [Concomitant]
     Dosage: 120 MG, QD
  3. LIPITOR [Concomitant]
     Dosage: 80 MG, QD
  4. TRICOR [Concomitant]
     Dosage: 160 MG, QD
  5. MAXZIDE [Concomitant]
     Dosage: 1 UNK, QD
  6. PREVACID [Concomitant]
     Dosage: 30 MG, QD
  7. ALLEGRA [Concomitant]
     Dosage: 180 MG, QD
  8. BUSPIRONE HCL [Concomitant]
     Dosage: 50 MG, QD
  9. DYNACIRC [Concomitant]
     Dosage: 10 MG, QD
  10. FENTANYL [Concomitant]
     Dosage: 25 MG, Q72H
  11. VIOXX [Concomitant]
     Dosage: 25 MG, QD
     Route: 048
  12. ONDASETRON [Concomitant]
     Dosage: 8 MG, BID
  13. EFFEXOR [Concomitant]
     Dosage: 37.5 MG, QD
     Route: 048
  14. TRIAMTERENE AND HYDROCHLOROTHIAZIDE [Concomitant]

REACTIONS (14)
  - ALANINE AMINOTRANSFERASE INCREASED [None]
  - ASPARTATE AMINOTRANSFERASE INCREASED [None]
  - ASTHENIA [None]
  - BLOOD ALKALINE PHOSPHATASE INCREASED [None]
  - BLOOD CREATININE INCREASED [None]
  - BLOOD UREA INCREASED [None]
  - DEHYDRATION [None]
  - DIARRHOEA [None]
  - HAEMODIALYSIS [None]
  - HYPOCALCAEMIA [None]
  - HYPOMAGNESAEMIA [None]
  - OLIGURIA [None]
  - RENAL FAILURE ACUTE [None]
  - RENAL TUBULAR NECROSIS [None]
